FAERS Safety Report 20737686 (Version 4)
Quarter: 2023Q2

REPORT INFORMATION
  Report Type: Spontaneous
  Country: US (occurrence: US)
  Receive Date: 20220422
  Receipt Date: 20230519
  Transmission Date: 20230721
  Serious: Yes (Disabling, Other)
  Sender: FDA-Public Use
  Company Number: US-ORGANON-O2204USA001531

PATIENT
  Sex: Female

DRUGS (2)
  1. SINGULAIR [Suspect]
     Active Substance: MONTELUKAST SODIUM
     Dosage: TAKE 1 TABLET ONCE A DAY
     Route: 048
     Dates: start: 1999, end: 2021
  2. MONTELUKAST SODIUM [Suspect]
     Active Substance: MONTELUKAST SODIUM
     Dosage: UNK

REACTIONS (4)
  - Neuropsychiatric symptoms [Not Recovered/Not Resolved]
  - Generalised anxiety disorder [Recovering/Resolving]
  - Major depression [Not Recovered/Not Resolved]
  - Dysania [Unknown]

NARRATIVE: CASE EVENT DATE: 20210101
